FAERS Safety Report 7713403-4 (Version None)
Quarter: 2011Q3

REPORT INFORMATION
  Report Type: 
  Country: None (occurrence: None)
  Receive Date: 20110826
  Receipt Date: 20110819
  Transmission Date: 20111222
  Serious: Yes (Other)
  Sender: FDA-Public Use
  Company Number: US-BAYER-200916212NA

PATIENT
  Age: 16 Year
  Sex: Female
  Weight: 68.027 kg

DRUGS (17)
  1. TRASYLOL [Suspect]
     Indication: AORTIC SURGERY
  2. CRYOPRECIPITATES [Concomitant]
     Dosage: 3 U, UNK
     Dates: start: 19960621
  3. VANCOMYCIN HCL [Concomitant]
     Dosage: 1 G, UNK
     Route: 042
     Dates: start: 19960621
  4. SODIUM NITROPRUSSIDE [Concomitant]
     Dosage: UNK
     Route: 042
     Dates: start: 19960621, end: 19960621
  5. HEPARIN [Concomitant]
     Dosage: UNK
     Route: 042
  6. ADENOSINE [Concomitant]
     Dosage: UNK
     Dates: start: 19960621
  7. DOPAMINE HCL [Concomitant]
     Dosage: UNK
     Route: 042
     Dates: start: 19960621, end: 19960621
  8. INSULIN [Concomitant]
     Dosage: UNK
     Dates: start: 19960621
  9. TRASYLOL [Suspect]
     Indication: AORTIC BYPASS
  10. LEVOPHED [Concomitant]
     Dosage: UNK
     Route: 042
     Dates: start: 19960621, end: 19960621
  11. POTASSIUM [Concomitant]
  12. TRASYLOL [Suspect]
     Indication: AORTIC ANEURYSM REPAIR
     Dates: start: 19960621
  13. ESMOLOL [Concomitant]
     Dosage: UNK
     Dates: start: 19960621
  14. PROTAMINE [Concomitant]
     Dosage: UNK
  15. LASIX [Concomitant]
  16. FRESH FROZEN PLASMA [Concomitant]
     Dosage: 4 U, UNK
     Dates: start: 19960621
  17. PLATELETS [Concomitant]
     Dosage: 4 U, UNK
     Dates: start: 19960621

REACTIONS (11)
  - ANXIETY [None]
  - CEREBROVASCULAR ACCIDENT [None]
  - RENAL FAILURE [None]
  - RENAL IMPAIRMENT [None]
  - EMOTIONAL DISTRESS [None]
  - MULTI-ORGAN FAILURE [None]
  - RENAL INJURY [None]
  - STRESS [None]
  - UNEVALUABLE EVENT [None]
  - FEAR [None]
  - PAIN [None]
